FAERS Safety Report 11625537 (Version 1)
Quarter: 2015Q4

REPORT INFORMATION
  Report Type: Spontaneous
  Country: US (occurrence: US)
  Receive Date: 20151013
  Receipt Date: 20151013
  Transmission Date: 20160304
  Serious: Yes (Disabling, Other)
  Sender: FDA-Public Use
  Company Number: US-PFIZER INC-2015337924

PATIENT
  Age: 53 Year
  Sex: Male
  Weight: 105 kg

DRUGS (2)
  1. MYSOLINE [Concomitant]
     Active Substance: PRIMIDONE
     Dosage: UNK
  2. CELONTIN [Suspect]
     Active Substance: METHSUXIMIDE
     Indication: SEIZURE
     Dosage: 300 MG, 1X/DAY
     Route: 048
     Dates: start: 1962

REACTIONS (1)
  - Myocardial infarction [Unknown]

NARRATIVE: CASE EVENT DATE: 200905
